FAERS Safety Report 9683518 (Version 3)
Quarter: 2013Q4

REPORT INFORMATION
  Report Type: Report from Study
  Country: GB (occurrence: GB)
  Receive Date: 20131112
  Receipt Date: 20131121
  Transmission Date: 20140711
  Serious: Yes (Hospitalization)
  Sender: FDA-Public Use
  Company Number: GB-TAKEDA-2013TUS002041

PATIENT
  Age: 74 Year
  Sex: Male
  Weight: 63 kg

DRUGS (1)
  1. PEGINESATIDE [Suspect]
     Indication: APLASIA PURE RED CELL
     Dosage: 1.28 ML, UNK
     Dates: start: 20120706, end: 20130926

REACTIONS (2)
  - Angina pectoris [Recovered/Resolved]
  - Lower respiratory tract infection [Recovered/Resolved]
